FAERS Safety Report 8883705 (Version 1)
Quarter: 2012Q4

REPORT INFORMATION
  Report Type: 
  Country: US (occurrence: US)
  Receive Date: 20121102
  Receipt Date: 20121102
  Transmission Date: 20130627
  Serious: No
  Sender: FDA-Public Use
  Company Number: US-ASTRAZENECA-2011SE73466

PATIENT
  Age: 83 Year
  Sex: Female
  Weight: 51.3 kg

DRUGS (5)
  1. CRESTOR [Suspect]
     Indication: BLOOD CHOLESTEROL ABNORMAL
     Route: 048
     Dates: start: 20111118
  2. EXFORGE [Concomitant]
  3. TEKTURNA [Concomitant]
  4. LIVER OIL [Concomitant]
  5. FISH OIL [Concomitant]

REACTIONS (1)
  - Paraesthesia [Unknown]
